FAERS Safety Report 5319325-0 (Version None)
Quarter: 2007Q2

REPORT INFORMATION
  Report Type: 
  Country: None (occurrence: None)
  Receive Date: 20070508
  Receipt Date: 20070430
  Transmission Date: 20071010
  Serious: Yes (Hospitalization)
  Sender: FDA-Public Use
  Company Number: FR-ABBOTT-07P-056-0366522-00

PATIENT

DRUGS (5)
  1. FENOFIBRATE [Suspect]
     Indication: DIABETES MELLITUS NON-INSULIN-DEPENDENT
     Route: 048
     Dates: start: 20070330, end: 20070413
  2. FENOFIBRATE [Suspect]
     Indication: DYSLIPIDAEMIA
  3. METFORMIN HCL [Suspect]
     Indication: DIABETES MELLITUS NON-INSULIN-DEPENDENT
     Route: 048
     Dates: start: 20070330, end: 20070413
  4. METFORMIN HCL [Suspect]
     Indication: DYSLIPIDAEMIA
  5. AMLODIPINE BESYLATE [Concomitant]
     Indication: HYPERTENSION
     Route: 048

REACTIONS (2)
  - FALL [None]
  - HEAD INJURY [None]
